FAERS Safety Report 10080865 (Version 2)
Quarter: 2015Q1

REPORT INFORMATION
  Report Type: Spontaneous
  Country: US (occurrence: US)
  Receive Date: 20140416
  Receipt Date: 20150109
  Transmission Date: 20150720
  Serious: Yes (Hospitalization, Other)
  Sender: FDA-Public Use
  Company Number: US-BAYER-2014-055770

PATIENT
  Age: 35 Year
  Sex: Female
  Weight: 102.4 kg

DRUGS (7)
  1. AMITRIPTYLINE HCL [Concomitant]
     Active Substance: AMITRIPTYLINE
     Dosage: 25 MG, UNK
     Dates: start: 20121018, end: 20121111
  2. TYLENOL [CHLORPHENAM MAL,DEXTROMET HBR,PARACET,PSEUDOEPH HCL] [Concomitant]
     Indication: PAIN
  3. ADVIL [Concomitant]
     Active Substance: IBUPROFEN
     Indication: PAIN
  4. OXYCODONE/APAP [Concomitant]
     Active Substance: ACETAMINOPHEN\OXYCODONE HYDROCHLORIDE
     Dosage: 5-325 (UNITS NOT SPECIFIED)
     Dates: start: 20121118
  5. YASMIN [Suspect]
     Active Substance: DROSPIRENONE\ETHINYL ESTRADIOL
     Indication: PREMENSTRUAL SYNDROME
  6. YAZ [Suspect]
     Active Substance: DROSPIRENONE\ETHINYL ESTRADIOL
     Indication: PREMENSTRUAL SYNDROME
  7. IBUPROFEN. [Concomitant]
     Active Substance: IBUPROFEN
     Dosage: 600 MG, UNK
     Dates: start: 20121119

REACTIONS (9)
  - Emotional distress [None]
  - Depression [None]
  - Haemorrhage [None]
  - Thrombosis [None]
  - Pain [None]
  - Deep vein thrombosis [None]
  - Cerebrovascular accident [None]
  - Pulmonary embolism [None]
  - Injury [None]
